FAERS Safety Report 7904179 (Version 3)
Quarter: 2013Q2

REPORT INFORMATION
  Report Type: Report from Study
  Country: CZ (occurrence: CZ)
  Receive Date: 20110419
  Receipt Date: 20130605
  Transmission Date: 20140414
  Serious: Yes (Death, Hospitalization)
  Sender: FDA-Public Use
  Company Number: CZ-BAYER-2011-029196

PATIENT
  Age: 59 Year
  Sex: Male

DRUGS (1)
  1. NEXAVAR [Suspect]
     Indication: RENAL CANCER
     Dosage: 800 MG, UNK
     Dates: start: 20110211, end: 20110224

REACTIONS (4)
  - Renal cancer [Fatal]
  - Dilatation ventricular [None]
  - Chest pain [None]
  - Dyspnoea [None]
